FAERS Safety Report 8319196-4 (Version None)
Quarter: 2012Q2

REPORT INFORMATION
  Report Type: 
  Country: None (occurrence: None)
  Receive Date: 20120427
  Receipt Date: 20120420
  Transmission Date: 20120825
  Serious: Yes (Hospitalization, Other)
  Sender: FDA-Public Use
  Company Number: US-MERCK-1107USA01371

PATIENT
  Age: 67 Year
  Sex: Female

DRUGS (7)
  1. FOSAMAX [Suspect]
     Route: 048
     Dates: start: 20070801, end: 20080801
  2. CALCIUM (UNSPECIFIED) [Concomitant]
     Route: 065
  3. FOSAMAX [Suspect]
     Route: 048
  4. CYANOCOBALAMIN [Concomitant]
     Route: 065
  5. FOSAMAX [Suspect]
     Route: 048
     Dates: start: 20040101
  6. VITAMIN E [Concomitant]
     Route: 065
  7. VITAMIN D (UNSPECIFIED) [Concomitant]
     Route: 065

REACTIONS (78)
  - FEMUR FRACTURE [None]
  - CANDIDIASIS [None]
  - GASTROINTESTINAL HAEMORRHAGE [None]
  - BILIRUBIN URINE [None]
  - ROSACEA [None]
  - PULMONARY HYPERTENSION [None]
  - HYPOXIA [None]
  - ENTEROCOCCAL INFECTION [None]
  - DIVERTICULITIS INTESTINAL HAEMORRHAGIC [None]
  - BOWEL MOVEMENT IRREGULARITY [None]
  - CHRONIC OBSTRUCTIVE PULMONARY DISEASE [None]
  - HAEMORRHAGIC ANAEMIA [None]
  - FEMORAL HERNIA [None]
  - SCAPULA FRACTURE [None]
  - PHLEBITIS [None]
  - STRESS [None]
  - ABDOMINAL PAIN [None]
  - LYMPH NODE CALCIFICATION [None]
  - LEUKOCYTOSIS [None]
  - ARTHROPATHY [None]
  - WEIGHT DECREASED [None]
  - SACROILIITIS [None]
  - MITRAL VALVE INCOMPETENCE [None]
  - HYPONATRAEMIA [None]
  - CLOSTRIDIUM DIFFICILE COLITIS [None]
  - CARDIAC DISORDER [None]
  - CHEST DISCOMFORT [None]
  - RESTRICTIVE PULMONARY DISEASE [None]
  - HYPERTENSIVE HEART DISEASE [None]
  - HYPERLIPIDAEMIA [None]
  - ATRIAL FIBRILLATION [None]
  - HYPERBILIRUBINAEMIA [None]
  - SMALL INTESTINAL OBSTRUCTION [None]
  - FATIGUE [None]
  - LOWER GASTROINTESTINAL HAEMORRHAGE [None]
  - COLONIC POLYP [None]
  - PULMONARY GRANULOMA [None]
  - ASTHENIA [None]
  - OVARIAN MASS [None]
  - ENTEROCOLITIS INFECTIOUS [None]
  - DIVERTICULITIS [None]
  - CLAVICLE FRACTURE [None]
  - CEREBRAL ATROPHY [None]
  - TENDON RUPTURE [None]
  - FALL [None]
  - URINARY TRACT INFECTION [None]
  - TOOTH DISORDER [None]
  - RIB FRACTURE [None]
  - OSTEOPENIA [None]
  - OEDEMA PERIPHERAL [None]
  - ATELECTASIS [None]
  - DEHYDRATION [None]
  - GALLBLADDER DISORDER [None]
  - GAIT DISTURBANCE [None]
  - PSEUDOMONAS INFECTION [None]
  - INSOMNIA [None]
  - HYPOTENSION [None]
  - CORONARY ARTERY DISEASE [None]
  - CONSTIPATION [None]
  - HYPOKALAEMIA [None]
  - ROTATOR CUFF SYNDROME [None]
  - MALNUTRITION [None]
  - ESCHERICHIA URINARY TRACT INFECTION [None]
  - PULMONARY FIBROSIS [None]
  - LEFT ATRIAL DILATATION [None]
  - OSTEOARTHRITIS [None]
  - ACNE [None]
  - ANAEMIA [None]
  - CARDIAC FAILURE CONGESTIVE [None]
  - IRON DEFICIENCY ANAEMIA [None]
  - LEFT VENTRICULAR HYPERTROPHY [None]
  - WEIGHT INCREASED [None]
  - SPLENIC GRANULOMA [None]
  - HAEMORRHOIDS [None]
  - PNEUMOTHORAX [None]
  - HYPERTENSION [None]
  - DIABETES MELLITUS [None]
  - ASTHMA [None]
